FAERS Safety Report 16646504 (Version 2)
Quarter: 2020Q2

REPORT INFORMATION
  Report Type: Spontaneous
  Country: GB (occurrence: GB)
  Receive Date: 20190730
  Receipt Date: 20200414
  Transmission Date: 20200713
  Serious: Yes (Life-Threatening, Hospitalization, Disabling)
  Sender: FDA-Public Use
  Company Number: GB-BAXTER-2019BAX014357

PATIENT
  Sex: Female

DRUGS (4)
  1. COCAINE [Concomitant]
     Active Substance: COCAINE
     Indication: DRUG DEPENDENCE
     Route: 065
  2. DIAMORPHINE [Concomitant]
     Active Substance: DIAMORPHINE
     Indication: DRUG DEPENDENCE
     Route: 065
  3. BUPIVACAINE-CLARIS 5MG/ML SOLUTION FOR INJECTION [Suspect]
     Active Substance: BUPIVACAINE HYDROCHLORIDE
     Indication: OVERDOSE
     Route: 042
  4. METHADONE [Concomitant]
     Active Substance: METHADONE HYDROCHLORIDE
     Indication: DRUG DEPENDENCE
     Route: 065

REACTIONS (19)
  - Dyspnoea [Not Recovered/Not Resolved]
  - Drug dependence [Unknown]
  - Intellectual disability [Not Recovered/Not Resolved]
  - Gait disturbance [Unknown]
  - Euphoric mood [Unknown]
  - Vomiting [Not Recovered/Not Resolved]
  - Mental impairment [Unknown]
  - Intentional overdose [Unknown]
  - Dysarthria [Unknown]
  - Neurotoxicity [Not Recovered/Not Resolved]
  - Cardiotoxicity [Not Recovered/Not Resolved]
  - Speech disorder [Unknown]
  - Sluggishness [Unknown]
  - Hypertension [Not Recovered/Not Resolved]
  - Coma [Not Recovered/Not Resolved]
  - Nausea [Not Recovered/Not Resolved]
  - Cognitive disorder [Unknown]
  - Local anaesthetic systemic toxicity [Not Recovered/Not Resolved]
  - Somnolence [Not Recovered/Not Resolved]
